FAERS Safety Report 6382301-3 (Version None)
Quarter: 2009Q3

REPORT INFORMATION
  Report Type: 
  Country: None (occurrence: None)
  Receive Date: 20090925
  Receipt Date: 20090910
  Transmission Date: 20100115
  Serious: Yes (Death, Hospitalization)
  Sender: FDA-Public Use
  Company Number: 2009002838

PATIENT
  Age: 66 Year
  Sex: Female

DRUGS (11)
  1. ERLOTINIB HYDROCHLORIDE [Suspect]
     Indication: NON-SMALL CELL LUNG CANCER
     Dosage: 150 MG, QD, DAYS 2-17, ORAL
     Route: 048
  2. PEMETREXED [Suspect]
     Indication: NON-SMALL CELL LUNG CANCER
     Dosage: 500 MG/M2, INTRAVENOUS
     Route: 042
  3. VITAMIN B12 (CYANCOBALAMIN) [Concomitant]
  4. FOLIC ACID [Concomitant]
  5. OMEPRAZOLE [Concomitant]
  6. PRAVASTATIN [Concomitant]
  7. ALPRAZOLAM (ALPROAZOLAM) [Concomitant]
  8. DOXYCYCLINE [Concomitant]
  9. PROCHLORPERAZINE (PROCHLORPRERAZINE) [Concomitant]
  10. ONDANSETRON [Concomitant]
  11. NICARDIPINE HCL [Concomitant]

REACTIONS (9)
  - ACUTE RESPIRATORY DISTRESS SYNDROME [None]
  - INFECTION [None]
  - LYMPHANGITIS [None]
  - MALIGNANT NEOPLASM PROGRESSION [None]
  - MYOCARDIAL INFARCTION [None]
  - NON-SMALL CELL LUNG CANCER [None]
  - PANCYTOPENIA [None]
  - PNEUMONITIS [None]
  - PULMONARY FIBROSIS [None]
